FAERS Safety Report 8905994 (Version 2)
Quarter: 2014Q1

REPORT INFORMATION
  Report Type: Report from Study
  Country: DE (occurrence: DE)
  Receive Date: 20121109
  Receipt Date: 20140306
  Transmission Date: 20141002
  Serious: Yes (Hospitalization)
  Sender: FDA-Public Use
  Company Number: DE-GLAXOSMITHKLINE-B0660661A

PATIENT
  Age: 41 Year
  Sex: Female
  Weight: 72 kg

DRUGS (4)
  1. LAPATINIB [Suspect]
     Indication: BREAST CANCER
     Dosage: 1250MG PER DAY
     Route: 048
     Dates: start: 20100329
  2. PACLITAXEL [Suspect]
     Indication: BREAST CANCER
     Dosage: 175MG PER DAY
     Route: 042
     Dates: start: 20100329
  3. MYOCET [Suspect]
     Indication: BREAST CANCER
     Dosage: 60MG PER DAY
     Route: 042
     Dates: start: 20100329
  4. RAMIPRIL [Concomitant]
     Indication: CARDIAC DISORDER
     Dosage: 1.25MG PER DAY
     Route: 048
     Dates: start: 20100510

REACTIONS (3)
  - Biliary dilatation [Recovered/Resolved with Sequelae]
  - Hepatic enzyme increased [Not Recovered/Not Resolved]
  - Bile duct stenosis [Not Recovered/Not Resolved]
